FAERS Safety Report 10237207 (Version 1)
Quarter: 2014Q1

REPORT INFORMATION
  Report Type: Spontaneous
  Country: US (occurrence: None)
  Receive Date: 20140306
  Receipt Date: 20140306
  Transmission Date: 20141002
  Serious: Yes (Other)
  Sender: FDA-Public Use
  Company Number: 163-21880-13050287

PATIENT
  Age: 73 Year
  Sex: Male
  Weight: 74.12 kg

DRUGS (19)
  1. REVLIMID (LENALIDOMIDE) 10 MILLIGRAM, CAPSULES) [Suspect]
     Indication: PLASMA CELL MYELOMA
     Dosage: 10 MG, 1 IN 1 D, PO
     Route: 048
     Dates: start: 200610, end: 200705
  2. THALOMID (THALIDOMIDE) (CAPSULES) [Suspect]
     Indication: PLASMA CELL MYELOMA
     Route: 048
     Dates: start: 200310, end: 200501
  3. DEXAMETHASONE (DEXAMETHASONE) (TABLETS) [Concomitant]
  4. ZOMETA (ZOLEDRONIC ACID) (INJECTION) [Concomitant]
  5. CALCIUM 500+D (CALCIUM D3 ^STADA^) (UNKNOWN) [Concomitant]
  6. ASPIRINE (ACETYLSALICYLIC ACID) (ENTERIC-COATED TABLET) [Concomitant]
  7. MOM (MAGNESIUM HYDROXIDE) (SUSPENSION) [Concomitant]
  8. GABAPENTIN (GABAPENTIN) [Concomitant]
  9. LACTULOSE (LACTULOSE) (SUSPENSION) [Concomitant]
  10. VITAMIN D (ERGOCALCIFEROL) (TABLETS) [Concomitant]
  11. MAGNESIUM CHLORIDE (MAGNESIUM CHLORIDE ANHYDROUS) (TABLETS) [Concomitant]
  12. IBUPROFEN (IBUPROFEN) (TABLETS) [Concomitant]
  13. MULTIVITAMINS (MULTIVITAMINS) (TABLETS) [Concomitant]
  14. OXYCODONE HCL (OXYCODONE HYDROCHLORIDE) (TABLETS) [Concomitant]
  15. VITAMIN B6 (PYRIDOXINE HYDROCHLORIDE) (TABLETS) [Concomitant]
  16. SENNA PLUS (SENNA) (TABLETS) [Concomitant]
  17. DICLOXACILLIN SODIUM (DICLOXACILLIN SODIUM MONOHYDRATE) (CAPSULES) [Concomitant]
  18. OXYCONTIN (OXYCODONE HYDROCHLORIDE) (CAPSULES) [Concomitant]
  19. PAMIDRONATE (PAMIDRONATE DISODIUM) (INJECTION) [Concomitant]

REACTIONS (1)
  - Prostate cancer [None]
